FAERS Safety Report 14957793 (Version 1)
Quarter: 2018Q2

REPORT INFORMATION
  Report Type: Spontaneous
  Country: ZA (occurrence: ZA)
  Receive Date: 20180531
  Receipt Date: 20180531
  Transmission Date: 20180711
  Serious: Yes (Hospitalization)
  Sender: FDA-Public Use
  Company Number: ZA-DRREDDYS-SAF/SAF/18/0099998

PATIENT
  Sex: Male

DRUGS (8)
  1. ETOMINE [Suspect]
     Active Substance: CLOTHIAPINE
     Indication: DEPRESSION
     Route: 048
  2. EPITEC [Suspect]
     Active Substance: LAMOTRIGINE
     Route: 048
  3. EPITEC [Suspect]
     Active Substance: LAMOTRIGINE
     Indication: EPILEPSY
     Route: 048
  4. MIRTAZAPINE. [Suspect]
     Active Substance: MIRTAZAPINE
     Indication: DEPRESSION
     Route: 048
  5. TOPLEP [Suspect]
     Active Substance: TOPIRAMATE
     Indication: DEPRESSION
     Route: 048
  6. EPLEPTIN [Suspect]
     Active Substance: GABAPENTIN
     Indication: EPILEPSY
     Route: 048
  7. DOPAQUEL [Suspect]
     Active Substance: QUETIAPINE
     Indication: DEPRESSION
     Route: 048
  8. ETHIPRAMINE [Suspect]
     Active Substance: IMIPRAMINE HYDROCHLORIDE
     Indication: DEPRESSION
     Route: 048

REACTIONS (1)
  - Bipolar disorder [Unknown]
